FAERS Safety Report 9208147 (Version 1)
Quarter: 2013Q2

REPORT INFORMATION
  Report Type: Spontaneous
  Country: DE (occurrence: DE)
  Receive Date: 20130403
  Receipt Date: 20130403
  Transmission Date: 20140414
  Serious: Yes (Hospitalization)
  Sender: FDA-Public Use
  Company Number: PHHY2013DE030426

PATIENT
  Age: 7 Year
  Sex: Male
  Weight: 22 kg

DRUGS (35)
  1. SANDIMMUN OPTORAL [Suspect]
     Indication: RENAL TRANSPLANT
     Dosage: 155 MG, (80-0-75)
     Route: 048
     Dates: start: 20110413, end: 20110531
  2. FLUCONAZOLE [Interacting]
     Indication: URINARY TRACT INFECTION FUNGAL
     Dosage: 125 MG
     Route: 042
     Dates: start: 20110429, end: 20110516
  3. CELLCEPT [Concomitant]
     Dosage: 1000 MG
     Route: 048
     Dates: start: 20110412
  4. CELLCEPT [Concomitant]
     Dosage: 40000 MG
     Route: 048
  5. CELLCEPT [Concomitant]
     Dosage: 500 MG
     Route: 048
  6. OMEPRAZOLE [Concomitant]
     Dosage: 20 MG
     Route: 048
     Dates: start: 20110413
  7. OMEPRAZOLE [Concomitant]
     Dosage: 780 MG
     Route: 048
  8. OMEPRAZOLE [Concomitant]
     Dosage: 10 MG
     Route: 048
  9. ACICLOVIR [Concomitant]
     Dosage: 400 MG
     Route: 048
     Dates: start: 20110520
  10. ACICLOVIR [Concomitant]
     Dosage: 800 MG
     Route: 048
  11. ACICLOVIR [Concomitant]
     Dosage: 200 MG
     Route: 048
  12. NEORECORMON [Concomitant]
     Dosage: 10000 UL
     Route: 042
     Dates: start: 200801
  13. NEORECORMON [Concomitant]
     Dosage: 5000 UL
     Route: 042
  14. KEPINOL [Concomitant]
     Dosage: 80 MG, EVERY DAY
     Route: 048
     Dates: start: 20110413
  15. KEPINOL [Concomitant]
     Dosage: 3120 MG
     Route: 048
  16. KEPINOL [Concomitant]
     Dosage: 40 MG
     Route: 048
  17. CEFUROXIME [Concomitant]
     Dosage: 1500 MG, EVERY DAY
     Route: 042
     Dates: start: 20110413, end: 20110522
  18. CEFUROXIME [Concomitant]
     Dosage: 58500 MG
     Route: 042
  19. CEFUROXIME [Concomitant]
     Dosage: 500 MG
     Route: 042
  20. DECORTIN [Concomitant]
     Dosage: 10 MG, EVERY DAY
     Dates: start: 20110413
  21. DECORTIN [Concomitant]
     Dosage: 390 MG
     Route: 048
  22. DECORTIN [Concomitant]
     Dosage: 10 MG,
     Route: 048
  23. DORMICUM [Concomitant]
     Dosage: 5 MG
     Route: 042
     Dates: start: 20110522, end: 20110522
  24. KETANEST [Concomitant]
     Dosage: 15 MG, EVERY DAY
     Route: 042
     Dates: start: 20110521, end: 20110521
  25. KETANEST [Concomitant]
     Dosage: 15 MG
     Route: 042
  26. KETANEST [Concomitant]
     Dosage: 50 MG
     Route: 042
     Dates: start: 20110522, end: 20110522
  27. KETANEST [Concomitant]
     Dosage: 100 MG
  28. KETANEST [Concomitant]
     Dosage: 25 MG
  29. METAMIZOLE [Concomitant]
     Dosage: 250 MG, EVERY DAY
     Route: 042
     Dates: start: 20110522, end: 20110522
  30. METAMIZOLE [Concomitant]
     Dosage: 500 MG
     Route: 042
  31. METAMIZOLE [Concomitant]
     Dosage: 250 MG
     Route: 042
  32. PERFALGAN [Concomitant]
     Dosage: 250 MG, EVERY DAY
     Route: 042
     Dates: start: 20110522, end: 20110522
  33. PERFALGAN [Concomitant]
     Dosage: 500 MG
     Route: 042
  34. PERFALGAN [Concomitant]
     Dosage: 250 MG
     Route: 042
  35. LASIX [Concomitant]
     Dosage: 20 MG, EVERY DAY
     Route: 042
     Dates: start: 20110521, end: 20110521

REACTIONS (5)
  - Encephalitis [Recovering/Resolving]
  - Disturbance in attention [Recovering/Resolving]
  - Neurotoxicity [Unknown]
  - Toxicity to various agents [Unknown]
  - Drug interaction [Unknown]
